FAERS Safety Report 6415891-2 (Version None)
Quarter: 2009Q4

REPORT INFORMATION
  Report Type: 
  Country: None (occurrence: None)
  Receive Date: 20091027
  Receipt Date: 20091020
  Transmission Date: 20100525
  Serious: Yes (Hospitalization)
  Sender: FDA-Public Use
  Company Number: A0729285A

PATIENT
  Age: 68 Year
  Sex: Male
  Weight: 95.5 kg

DRUGS (9)
  1. AVANDIA [Suspect]
     Indication: DIABETES MELLITUS
     Dosage: 8MG TWICE PER DAY
     Route: 048
     Dates: start: 20000101, end: 20060322
  2. MOBIC [Concomitant]
  3. LORTAB [Concomitant]
  4. ZYRTEC [Concomitant]
  5. ASPIRIN [Concomitant]
  6. GLUCOVANCE [Concomitant]
  7. TRICOR [Concomitant]
  8. STARLIX [Concomitant]
  9. ALTACE [Concomitant]

REACTIONS (20)
  - ARTERIAL STENOSIS LIMB [None]
  - ASTHENIA [None]
  - CARDIAC ANEURYSM [None]
  - CARDIAC FAILURE CONGESTIVE [None]
  - CAROTID ARTERY STENOSIS [None]
  - DIABETES MELLITUS INADEQUATE CONTROL [None]
  - DISORIENTATION [None]
  - FEMORAL ARTERIAL STENOSIS [None]
  - HYPERTENSIVE HEART DISEASE [None]
  - LIPOMA [None]
  - LOBAR PNEUMONIA [None]
  - MITRAL VALVE INCOMPETENCE [None]
  - MOBILITY DECREASED [None]
  - MYOCARDIAL INFARCTION [None]
  - MYOCARDIAL ISCHAEMIA [None]
  - NORMOCHROMIC NORMOCYTIC ANAEMIA [None]
  - PULMONARY HYPERTENSION [None]
  - RENAL FAILURE [None]
  - TREATMENT NONCOMPLIANCE [None]
  - TRICUSPID VALVE INCOMPETENCE [None]
